FAERS Safety Report 14182707 (Version 1)
Quarter: 2017Q4

REPORT INFORMATION
  Report Type: Spontaneous
  Country: US (occurrence: US)
  Receive Date: 20171113
  Receipt Date: 20171113
  Transmission Date: 20180321
  Serious: No
  Sender: FDA-Public Use
  Company Number: US-EISAI MEDICAL RESEARCH-AP356-00191-SPO-US

PATIENT
  Age: 49 Year
  Sex: Male
  Weight: 113.8 kg

DRUGS (3)
  1. BELVIQ [Suspect]
     Active Substance: LORCASERIN HYDROCHLORIDE
     Indication: WEIGHT DECREASED
     Route: 048
     Dates: start: 20131023
  2. GLIMEPIRIDE. [Concomitant]
     Active Substance: GLIMEPIRIDE
     Indication: BLOOD GLUCOSE INCREASED
     Dosage: UNKNOWN
     Route: 048
  3. LISINOPRIL WITH HYDROCHLOROTHIAZIDE [Concomitant]
     Active Substance: HYDROCHLOROTHIAZIDE\LISINOPRIL
     Indication: HYPERTENSION
     Dosage: UNKNOWN
     Route: 048

REACTIONS (6)
  - Feeling abnormal [Recovered/Resolved]
  - Influenza like illness [Recovered/Resolved]
  - Impatience [Not Recovered/Not Resolved]
  - Bradyphrenia [Recovered/Resolved]
  - Dizziness [Recovered/Resolved]
  - Headache [Recovered/Resolved]

NARRATIVE: CASE EVENT DATE: 201310
